FAERS Safety Report 5682872-6 (Version None)
Quarter: 2008Q1

REPORT INFORMATION
  Report Type: 
  Country: None (occurrence: None)
  Receive Date: 20080327
  Receipt Date: 20080319
  Transmission Date: 20080703
  Serious: Yes (Other)
  Sender: FDA-Public Use
  Company Number: B0513982A

PATIENT
  Age: 42 Year
  Sex: Female

DRUGS (4)
  1. RETROVIR [Suspect]
     Indication: HIV INFECTION
     Dosage: 250MG TWICE PER DAY
     Route: 048
     Dates: start: 20080129, end: 20080208
  2. ENTECAVIR [Suspect]
     Dosage: .5MG PER DAY
     Route: 048
     Dates: start: 20061116, end: 20080128
  3. TRUVADA [Suspect]
     Indication: HIV INFECTION
     Route: 048
     Dates: start: 20080129, end: 20080208
  4. KALETRA [Suspect]
     Indication: HIV INFECTION
     Route: 048
     Dates: start: 20080129, end: 20080208

REACTIONS (3)
  - ABORTION SPONTANEOUS [None]
  - DERMATITIS ALLERGIC [None]
  - INTRA-UTERINE DEATH [None]
